FAERS Safety Report 25822953 (Version 1)
Quarter: 2025Q3

REPORT INFORMATION
  Report Type: Spontaneous
  Country: JP (occurrence: JP)
  Receive Date: 20250919
  Receipt Date: 20250919
  Transmission Date: 20251020
  Serious: Yes (Life-Threatening, Hospitalization)
  Sender: MYLAN
  Company Number: JP-MYLANLABS-2025M1078796

PATIENT
  Age: 62 Year
  Sex: Female

DRUGS (32)
  1. REVATIO [Suspect]
     Active Substance: SILDENAFIL CITRATE
     Indication: Right ventricular failure
     Dosage: ON POSTOPERATIVE DAY 10
  2. REVATIO [Suspect]
     Active Substance: SILDENAFIL CITRATE
     Dosage: ON POSTOPERATIVE DAY 10
     Route: 048
  3. REVATIO [Suspect]
     Active Substance: SILDENAFIL CITRATE
     Dosage: ON POSTOPERATIVE DAY 10
     Route: 048
  4. REVATIO [Suspect]
     Active Substance: SILDENAFIL CITRATE
     Dosage: ON POSTOPERATIVE DAY 10
  5. PREDNISOLONE [Suspect]
     Active Substance: PREDNISOLONE
     Indication: Cardiac failure
  6. PREDNISOLONE [Suspect]
     Active Substance: PREDNISOLONE
     Route: 065
  7. PREDNISOLONE [Suspect]
     Active Substance: PREDNISOLONE
     Route: 065
  8. PREDNISOLONE [Suspect]
     Active Substance: PREDNISOLONE
  9. HEPARIN [Suspect]
     Active Substance: HEPARIN SODIUM
     Indication: Cardiac ventricular thrombosis
  10. HEPARIN [Suspect]
     Active Substance: HEPARIN SODIUM
     Route: 065
  11. HEPARIN [Suspect]
     Active Substance: HEPARIN SODIUM
     Route: 065
  12. HEPARIN [Suspect]
     Active Substance: HEPARIN SODIUM
  13. DOBUTAMINE [Suspect]
     Active Substance: DOBUTAMINE HYDROCHLORIDE
     Indication: Cardiac failure
     Dosage: 5 MICROGRAM/KILOGRAM, QMINUTE
  14. DOBUTAMINE [Suspect]
     Active Substance: DOBUTAMINE HYDROCHLORIDE
     Dosage: 5 MICROGRAM/KILOGRAM, QMINUTE
  15. DOBUTAMINE [Suspect]
     Active Substance: DOBUTAMINE HYDROCHLORIDE
     Dosage: 5 MICROGRAM/KILOGRAM, QMINUTE
     Route: 042
  16. DOBUTAMINE [Suspect]
     Active Substance: DOBUTAMINE HYDROCHLORIDE
     Dosage: 5 MICROGRAM/KILOGRAM, QMINUTE
     Route: 042
  17. DOBUTAMINE [Suspect]
     Active Substance: DOBUTAMINE HYDROCHLORIDE
     Dosage: 5 MICROGRAM/KILOGRAM, QMINUTE
  18. DOBUTAMINE [Suspect]
     Active Substance: DOBUTAMINE HYDROCHLORIDE
     Dosage: 5 MICROGRAM/KILOGRAM, QMINUTE
  19. DOBUTAMINE [Suspect]
     Active Substance: DOBUTAMINE HYDROCHLORIDE
     Dosage: 5 MICROGRAM/KILOGRAM, QMINUTE
     Route: 042
  20. DOBUTAMINE [Suspect]
     Active Substance: DOBUTAMINE HYDROCHLORIDE
     Dosage: 5 MICROGRAM/KILOGRAM, QMINUTE
     Route: 042
  21. MILRINONE [Suspect]
     Active Substance: MILRINONE
     Indication: Cardiac failure
     Dosage: 0.125 MICROGRAM/KILOGRAM, QMINUTE
  22. MILRINONE [Suspect]
     Active Substance: MILRINONE
     Dosage: 0.125 MICROGRAM/KILOGRAM, QMINUTE
  23. MILRINONE [Suspect]
     Active Substance: MILRINONE
     Dosage: 0.125 MICROGRAM/KILOGRAM, QMINUTE
     Route: 042
  24. MILRINONE [Suspect]
     Active Substance: MILRINONE
     Dosage: 0.125 MICROGRAM/KILOGRAM, QMINUTE
     Route: 042
  25. MILRINONE [Suspect]
     Active Substance: MILRINONE
     Dosage: 0.125 MICROGRAM/KILOGRAM, QMINUTE
  26. MILRINONE [Suspect]
     Active Substance: MILRINONE
     Dosage: 0.125 MICROGRAM/KILOGRAM, QMINUTE
  27. MILRINONE [Suspect]
     Active Substance: MILRINONE
     Dosage: 0.125 MICROGRAM/KILOGRAM, QMINUTE
     Route: 042
  28. MILRINONE [Suspect]
     Active Substance: MILRINONE
     Dosage: 0.125 MICROGRAM/KILOGRAM, QMINUTE
     Route: 042
  29. PIMOBENDAN [Suspect]
     Active Substance: PIMOBENDAN
     Indication: Right ventricular failure
     Dosage: ON POSTOPERATIVE DAY 1
  30. PIMOBENDAN [Suspect]
     Active Substance: PIMOBENDAN
     Dosage: ON POSTOPERATIVE DAY 1
     Route: 048
  31. PIMOBENDAN [Suspect]
     Active Substance: PIMOBENDAN
     Dosage: ON POSTOPERATIVE DAY 1
     Route: 048
  32. PIMOBENDAN [Suspect]
     Active Substance: PIMOBENDAN
     Dosage: ON POSTOPERATIVE DAY 1

REACTIONS (2)
  - Steroid diabetes [Recovering/Resolving]
  - Drug ineffective [Unknown]
